FAERS Safety Report 20472775 (Version 1)
Quarter: 2022Q1

REPORT INFORMATION
  Report Type: Spontaneous
  Country: US (occurrence: US)
  Receive Date: 20220215
  Receipt Date: 20220215
  Transmission Date: 20220423
  Serious: No
  Sender: FDA-Public Use
  Company Number: US-ORGANON-O2202USA000636

PATIENT
  Sex: Female

DRUGS (1)
  1. NEXPLANON [Suspect]
     Active Substance: ETONOGESTREL
     Indication: Contraception
     Dosage: 1 IMPLANT OF 68 MG
     Route: 059
     Dates: start: 20211230

REACTIONS (5)
  - Implant site infection [Not Recovered/Not Resolved]
  - Implant site bruising [Not Recovered/Not Resolved]
  - Implant site pain [Not Recovered/Not Resolved]
  - Implant site erythema [Not Recovered/Not Resolved]
  - Implant site inflammation [Not Recovered/Not Resolved]

NARRATIVE: CASE EVENT DATE: 20220101
